FAERS Safety Report 18005462 (Version 1)
Quarter: 2020Q3

REPORT INFORMATION
  Report Type: Spontaneous
  Country: US (occurrence: US)
  Receive Date: 20200710
  Receipt Date: 20200710
  Transmission Date: 20201103
  Serious: No
  Sender: FDA-Public Use
  Company Number: US-GLAXOSMITHKLINE-US2020125360

PATIENT
  Sex: Female

DRUGS (8)
  1. LAMISIL AT [Suspect]
     Active Substance: TERBINAFINE HYDROCHLORIDE
     Indication: TINEA PEDIS
  2. LAMISIL AT CONTINUOUS SPRAY [Suspect]
     Active Substance: TERBINAFINE HYDROCHLORIDE
     Indication: TINEA PEDIS
  3. CERAVE (EMOLLIENTS AND PROTECTIVES) [Suspect]
     Active Substance: EMOLLIENTS
     Indication: FUNGAL SKIN INFECTION
     Dosage: UNK
  4. HYDROCORTISONE. [Suspect]
     Active Substance: HYDROCORTISONE
     Indication: TINEA PEDIS
  5. HYDROCORTISONE. [Suspect]
     Active Substance: HYDROCORTISONE
     Indication: FUNGAL SKIN INFECTION
     Dosage: UNK
  6. CERAVE (EMOLLIENTS AND PROTECTIVES) [Suspect]
     Active Substance: EMOLLIENTS
     Indication: TINEA PEDIS
  7. LAMISIL AT [Suspect]
     Active Substance: TERBINAFINE HYDROCHLORIDE
     Indication: FUNGAL SKIN INFECTION
     Dosage: UNK
  8. LAMISIL AT CONTINUOUS SPRAY [Suspect]
     Active Substance: TERBINAFINE HYDROCHLORIDE
     Indication: FUNGAL SKIN INFECTION
     Dosage: UNK

REACTIONS (4)
  - Erythema [Unknown]
  - Dry skin [Unknown]
  - Drug ineffective [Unknown]
  - Rash [Unknown]
